FAERS Safety Report 7031508-0 (Version None)
Quarter: 2010Q4

REPORT INFORMATION
  Report Type: 
  Country: None (occurrence: None)
  Receive Date: 20101006
  Receipt Date: 20101006
  Transmission Date: 20110411
  Serious: Yes (Life-Threatening, Hospitalization)
  Sender: FDA-Public Use
  Company Number: None

PATIENT
  Age: 35 Year
  Sex: Female
  Weight: 65.7716 kg

DRUGS (2)
  1. METHOTREXATE [Suspect]
     Indication: ECTOPIC PREGNANCY
     Dosage: IV
     Route: 042
     Dates: start: 20061213, end: 20061213
  2. METHOTREXATE [Suspect]
     Indication: ECTOPIC PREGNANCY
     Dosage: IV
     Route: 042
     Dates: start: 20061216, end: 20061216

REACTIONS (4)
  - APPARENT DEATH [None]
  - DRUG EXPOSURE DURING PREGNANCY [None]
  - NO THERAPEUTIC RESPONSE [None]
  - RUPTURED ECTOPIC PREGNANCY [None]
